FAERS Safety Report 4886069-9 (Version None)
Quarter: 2006Q1

REPORT INFORMATION
  Report Type: 
  Country: None (occurrence: None)
  Receive Date: 20060117
  Receipt Date: 20060104
  Transmission Date: 20060701
  Serious: Yes (Disabling)
  Sender: FDA-Public Use
  Company Number: 200514433GDS

PATIENT
  Age: 25 Year
  Sex: Male

DRUGS (1)
  1. CIPROFLOXACIN [Suspect]
     Indication: PROSTATITIS
     Dosage: 1000 MG, TOTAL DAILY, ORAL
     Route: 048
     Dates: start: 20011016

REACTIONS (31)
  - ABDOMINAL PAIN [None]
  - ABDOMINAL PAIN UPPER [None]
  - ABNORMAL DREAMS [None]
  - ALOPECIA [None]
  - AMNESIA [None]
  - ARRHYTHMIA [None]
  - CHRONIC FATIGUE SYNDROME [None]
  - DECREASED ACTIVITY [None]
  - DEPRESSED MOOD [None]
  - DEPRESSION [None]
  - DIARRHOEA [None]
  - DISEASE RECURRENCE [None]
  - DISTURBANCE IN ATTENTION [None]
  - DIZZINESS [None]
  - EPISTAXIS [None]
  - FAECAL INCONTINENCE [None]
  - FATIGUE [None]
  - FLANK PAIN [None]
  - FLATULENCE [None]
  - HEADACHE [None]
  - MUSCLE SPASMS [None]
  - NASOPHARYNGITIS [None]
  - NAUSEA [None]
  - NIGHT SWEATS [None]
  - PALPITATIONS [None]
  - POLLAKIURIA [None]
  - PROSTATITIS [None]
  - SLEEP DISORDER [None]
  - TINNITUS [None]
  - TREMOR [None]
  - VISION BLURRED [None]
